FAERS Safety Report 8187501-8 (Version None)
Quarter: 2012Q1

REPORT INFORMATION
  Report Type: 
  Country: None (occurrence: None)
  Receive Date: 20120306
  Receipt Date: 20120301
  Transmission Date: 20120608
  Serious: Yes (Hospitalization)
  Sender: FDA-Public Use
  Company Number: CA-B.I. PHARMACEUTICALS,INC./RIDGEFIELD-2012-CN-00487CN

PATIENT
  Age: 54 Year
  Sex: Male

DRUGS (1)
  1. MICARDIS [Suspect]
     Indication: HYPERTENSION
     Dosage: 80 MG
     Route: 048
     Dates: start: 20080101

REACTIONS (9)
  - DIARRHOEA [None]
  - AORTIC VALVE DISEASE [None]
  - EJECTION FRACTION DECREASED [None]
  - RASH [None]
  - CHEST PAIN [None]
  - AORTIC VALVE SCLEROSIS [None]
  - AORTIC VALVE STENOSIS [None]
  - MYOCARDIAL INFARCTION [None]
  - HEART VALVE INCOMPETENCE [None]
